FAERS Safety Report 10606340 (Version 2)
Quarter: 2015Q1

REPORT INFORMATION
  Report Type: Spontaneous
  Country: JP (occurrence: JP)
  Receive Date: 20141125
  Receipt Date: 20150317
  Transmission Date: 20150720
  Serious: Yes (Hospitalization)
  Sender: FDA-Public Use
  Company Number: PHHY2014JP149834

PATIENT
  Age: 71 Year
  Sex: Male
  Weight: 52 kg

DRUGS (5)
  1. DEXART [Concomitant]
     Active Substance: DEXAMETHASONE SODIUM PHOSPHATE
     Indication: PRODUCT USED FOR UNKNOWN INDICATION
     Dosage: UNK
     Route: 065
     Dates: start: 20130603, end: 20130819
  2. BICALUTAMIDE. [Concomitant]
     Active Substance: BICALUTAMIDE
     Indication: PRODUCT USED FOR UNKNOWN INDICATION
     Dosage: UNK
     Route: 048
     Dates: start: 200509, end: 20130819
  3. DOCETAXEL. [Concomitant]
     Active Substance: DOCETAXEL
     Dosage: UNK
     Route: 065
     Dates: start: 200509, end: 20130819
  4. FLUTAMIDE. [Concomitant]
     Active Substance: FLUTAMIDE
     Indication: PRODUCT USED FOR UNKNOWN INDICATION
     Dosage: UNK
     Route: 048
     Dates: start: 200509, end: 20130819
  5. ZOMETA [Suspect]
     Active Substance: ZOLEDRONIC ACID
     Indication: METASTASES TO BONE
     Dosage: 3.5 MG, MONTHLY
     Route: 041
     Dates: start: 20120425, end: 20130819

REACTIONS (14)
  - Feeding disorder [Recovering/Resolving]
  - Exposed bone in jaw [Recovering/Resolving]
  - Swelling [Recovering/Resolving]
  - Fistula [Recovering/Resolving]
  - Periodontitis [Recovering/Resolving]
  - Osteonecrosis of jaw [Recovering/Resolving]
  - Pyrexia [Recovering/Resolving]
  - Tenderness [Recovering/Resolving]
  - Purulent discharge [Recovering/Resolving]
  - Abasia [Recovering/Resolving]
  - Pain [Recovering/Resolving]
  - Erythema [Recovering/Resolving]
  - Abscess [Recovering/Resolving]
  - Malaise [Recovering/Resolving]

NARRATIVE: CASE EVENT DATE: 20140117
